FAERS Safety Report 24724330 (Version 2)
Quarter: 2025Q2

REPORT INFORMATION
  Report Type: Spontaneous
  Country: JP (occurrence: JP)
  Receive Date: 20241212
  Receipt Date: 20250415
  Transmission Date: 20250716
  Serious: Yes (Death, Other)
  Sender: GENMAB
  Company Number: JP-GENMAB-2024-04545

PATIENT
  Age: 60 Year
  Sex: Male

DRUGS (2)
  1. EPKINLY [Suspect]
     Active Substance: EPCORITAMAB-BYSP
     Indication: Diffuse large B-cell lymphoma refractory
     Route: 058
     Dates: start: 20241111, end: 20241111
  2. EPKINLY [Suspect]
     Active Substance: EPCORITAMAB-BYSP
     Route: 058
     Dates: start: 20241118, end: 20241118

REACTIONS (1)
  - Diffuse large B-cell lymphoma refractory [Fatal]

NARRATIVE: CASE EVENT DATE: 20241121
